FAERS Safety Report 13058100 (Version 1)
Quarter: 2016Q4

REPORT INFORMATION
  Report Type: Other
  Country: IT (occurrence: IT)
  Receive Date: 20161223
  Receipt Date: 20161223
  Transmission Date: 20170207
  Serious: Yes (Hospitalization)
  Sender: FDA-Public Use
  Company Number: IT-LUPIN PHARMACEUTICALS INC.-2016-05634

PATIENT
  Age: 3 Year
  Sex: Male

DRUGS (1)
  1. LAMOTRIGINE TABLETS 200MG (LAMOTRIGINE) TABLE T [Suspect]
     Active Substance: LAMOTRIGINE
     Indication: PRODUCT USED FOR UNKNOWN INDICATION
     Route: 065

REACTIONS (12)
  - Bundle branch block right [Unknown]
  - Restlessness [Unknown]
  - Oculogyric crisis [Unknown]
  - Hyperphagia [Not Recovered/Not Resolved]
  - Accidental overdose [Unknown]
  - Generalised tonic-clonic seizure [Recovered/Resolved]
  - Toxicity to various agents [Unknown]
  - Sinus tachycardia [Unknown]
  - Agitation [Unknown]
  - Malaise [Unknown]
  - Ataxia [Unknown]
  - Dystonia [Unknown]
